FAERS Safety Report 23051314 (Version 2)
Quarter: 2023Q4

REPORT INFORMATION
  Report Type: Other
  Country: PT (occurrence: None)
  Receive Date: 20231010
  Receipt Date: 20231211
  Transmission Date: 20240109
  Serious: Yes (Other)
  Sender: FDA-Public Use
  Company Number: PT-ROCHE-3435119

PATIENT

DRUGS (2)
  1. OCRELIZUMAB [Suspect]
     Active Substance: OCRELIZUMAB
     Indication: Relapsing-remitting multiple sclerosis
     Route: 042
  2. OCRELIZUMAB [Suspect]
     Active Substance: OCRELIZUMAB
     Indication: Primary progressive multiple sclerosis

REACTIONS (7)
  - Lymphopenia [Unknown]
  - CD4 lymphocytes decreased [Unknown]
  - CD8 lymphocytes decreased [Unknown]
  - Selective IgG subclass deficiency [Unknown]
  - Selective IgA immunodeficiency [Unknown]
  - Blood immunoglobulin M decreased [Unknown]
  - Infection [Unknown]
